FAERS Safety Report 7279708-9 (Version None)
Quarter: 2011Q1

REPORT INFORMATION
  Report Type: 
  Country: None (occurrence: None)
  Receive Date: 20110208
  Receipt Date: 20110125
  Transmission Date: 20110831
  Serious: Yes (Other)
  Sender: FDA-Public Use
  Company Number: US-RANBAXY-2011US-41644

PATIENT
  Sex: Female

DRUGS (1)
  1. VERAPAMIL [Suspect]
     Indication: PRODUCT USED FOR UNKNOWN INDICATION
     Dosage: 7.2 G
     Route: 065

REACTIONS (3)
  - SUICIDAL IDEATION [None]
  - ISCHAEMIC STROKE [None]
  - TOXICITY TO VARIOUS AGENTS [None]
